FAERS Safety Report 5255840-6 (Version None)
Quarter: 2007Q1

REPORT INFORMATION
  Report Type: 
  Country: None (occurrence: None)
  Receive Date: 20070301
  Receipt Date: 20070216
  Transmission Date: 20070707
  Serious: Yes (Other)
  Sender: FDA-Public Use
  Company Number: THYR-10404

PATIENT
  Sex: Male

DRUGS (1)
  1. THYROGEN [Suspect]
     Indication: DRUG USE FOR UNKNOWN INDICATION
     Dosage: 0.9 MG DAILY; IM
     Route: 030

REACTIONS (2)
  - ATRIAL FLUTTER [None]
  - CONDITION AGGRAVATED [None]
